FAERS Safety Report 15130390 (Version 2)
Quarter: 2018Q3

REPORT INFORMATION
  Report Type: Spontaneous
  Country: JP (occurrence: JP)
  Receive Date: 20180711
  Receipt Date: 20180829
  Transmission Date: 20181010
  Serious: Yes (Other)
  Sender: FDA-Public Use
  Company Number: JP-009507513-1807JPN004465

PATIENT
  Age: 88 Year
  Sex: Female

DRUGS (7)
  1. UBRETID [Concomitant]
     Active Substance: DISTIGMINE BROMIDE
  2. MAGMITT [Concomitant]
     Active Substance: MAGNESIUM OXIDE
  3. SITAGLIPTIN PHOSPHATE [Suspect]
     Active Substance: SITAGLIPTIN PHOSPHATE
     Indication: TYPE 2 DIABETES MELLITUS
     Dosage: 25 MG (STRENGTH: 12.5MG,25MG,50MG,100MG)
     Route: 048
     Dates: start: 20180630, end: 2018
  4. RENIVACE [Concomitant]
     Active Substance: ENALAPRIL
  5. LENDORMIN [Concomitant]
     Active Substance: BROTIZOLAM
  6. BESACOLIN [Concomitant]
     Active Substance: BETHANECHOL CHLORIDE
  7. FOSMICIN [Concomitant]
     Active Substance: FOSFOMYCIN CALCIUM

REACTIONS (1)
  - Dementia [Recovering/Resolving]

NARRATIVE: CASE EVENT DATE: 20180704
